FAERS Safety Report 17326628 (Version 6)
Quarter: 2020Q1

REPORT INFORMATION
  Report Type: Spontaneous
  Country: GB (occurrence: GB)
  Receive Date: 20200127
  Receipt Date: 20200324
  Transmission Date: 20200409
  Serious: Yes (Hospitalization)
  Sender: FDA-Public Use
  Company Number: GB-MYLANLABS-2020M1009607

PATIENT
  Age: 34 Year
  Sex: Male

DRUGS (2)
  1. CLOZARIL [Suspect]
     Active Substance: CLOZAPINE
     Dosage: UNK
     Route: 048
     Dates: start: 20200127
  2. CLOZARIL [Suspect]
     Active Substance: CLOZAPINE
     Indication: SCHIZOPHRENIA
     Dosage: UNK
     Route: 048
     Dates: start: 20170612

REACTIONS (4)
  - Leukocytosis [Not Recovered/Not Resolved]
  - Schizophrenia [Unknown]
  - Differential white blood cell count abnormal [Not Recovered/Not Resolved]
  - Neutrophilia [Recovering/Resolving]

NARRATIVE: CASE EVENT DATE: 20200203
